FAERS Safety Report 18209858 (Version 1)
Quarter: 2020Q3

REPORT INFORMATION
  Report Type: Spontaneous
  Country: US (occurrence: US)
  Receive Date: 20200828
  Receipt Date: 20200828
  Transmission Date: 20201103
  Serious: No
  Sender: FDA-Public Use
  Company Number: US-VERTEX PHARMACEUTICALS-2020-017287

PATIENT

DRUGS (1)
  1. TRIKAFTA [Suspect]
     Active Substance: ELEXACAFTOR\IVACAFTOR\TEZACAFTOR
     Indication: CYSTIC FIBROSIS
     Dosage: UNKNOWN
     Route: 048

REACTIONS (6)
  - Hepatic enzyme increased [Unknown]
  - Cough [Recovered/Resolved]
  - Blood bilirubin increased [Unknown]
  - Constipation [Unknown]
  - Weight increased [Unknown]
  - Rash [Unknown]
